FAERS Safety Report 19878038 (Version 3)
Quarter: 2022Q2

REPORT INFORMATION
  Report Type: Report from Study
  Country: US (occurrence: US)
  Receive Date: 20210924
  Receipt Date: 20220525
  Transmission Date: 20220721
  Serious: Yes (Hospitalization, Disabling, Other)
  Sender: FDA-Public Use
  Company Number: US-SANOFI-00674648

PATIENT
  Age: 79 Year
  Sex: Female

DRUGS (2)
  1. DUPILUMAB [Suspect]
     Active Substance: DUPILUMAB
     Indication: Dermatitis atopic
     Dosage: 300 MG, 1X
     Route: 058
     Dates: start: 20210517, end: 20210517
  2. DUPILUMAB [Suspect]
     Active Substance: DUPILUMAB
     Dosage: 300 MG, QOW
     Route: 058
     Dates: start: 2021, end: 20211004

REACTIONS (13)
  - Cerebrovascular accident [Recovered/Resolved]
  - Breast cancer stage IV [Unknown]
  - Bone cancer [Not Recovered/Not Resolved]
  - Gait disturbance [Unknown]
  - Injection site pain [Recovered/Resolved]
  - Product preparation error [Recovered/Resolved]
  - Psoriasis [Not Recovered/Not Resolved]
  - Asthenia [Not Recovered/Not Resolved]
  - Neck mass [Not Recovered/Not Resolved]
  - Arthropod sting [Recovered/Resolved]
  - Endodontic procedure [Unknown]
  - Herpes zoster [Recovered/Resolved]
  - Incorrect dose administered [Unknown]

NARRATIVE: CASE EVENT DATE: 20210101
